FAERS Safety Report 5112877-5 (Version None)
Quarter: 2006Q3

REPORT INFORMATION
  Report Type: 
  Country: None (occurrence: None)
  Receive Date: 20060921
  Receipt Date: 20060921
  Transmission Date: 20061208
  Serious: Yes (Hospitalization)
  Sender: FDA-Public Use
  Company Number: None

PATIENT
  Sex: Female
  Weight: 53.52 kg

DRUGS (2)
  1. CISPLATIN [Suspect]
     Dosage: 79 MG
  2. TAXOL [Suspect]
     Dosage: 212 MG

REACTIONS (6)
  - FEBRILE NEUTROPENIA [None]
  - HYPOTENSION [None]
  - MENTAL STATUS CHANGES [None]
  - PANCYTOPENIA [None]
  - PNEUMOTHORAX [None]
  - SEPSIS [None]
